FAERS Safety Report 15386662 (Version 2)
Quarter: 2018Q3

REPORT INFORMATION
  Report Type: Spontaneous
  Country: JP (occurrence: JP)
  Receive Date: 20180914
  Receipt Date: 20180926
  Transmission Date: 20181010
  Serious: Yes (Death, Life-Threatening, Other)
  Sender: FDA-Public Use
  Company Number: JP-ASTRAZENECA-2018SF16470

PATIENT
  Age: 75 Year
  Sex: Male

DRUGS (19)
  1. LIMAPROST ALFADEX [Concomitant]
     Active Substance: LIMAPROST
     Route: 048
  2. XOLAIR [Concomitant]
     Active Substance: OMALIZUMAB
     Dosage: DOSE UNKNOWN
     Route: 065
  3. MAGMITT [Concomitant]
     Active Substance: MAGNESIUM OXIDE
     Route: 048
  4. SAWACILLIN [Concomitant]
     Active Substance: AMOXICILLIN
     Dosage: DOSE UNKNOWN
     Route: 048
     Dates: start: 20180817
  5. RINDERON V [Concomitant]
     Active Substance: BETAMETHASONE VALERATE
     Dosage: AS REQUIRED WHEN SYMPTOMS DEVELOPED (AT HOME)
     Route: 055
  6. AUGMENTIN [Concomitant]
     Active Substance: AMOXICILLIN\CLAVULANATE POTASSIUM
     Route: 048
     Dates: start: 20180817
  7. GLIMEPIRIDE. [Concomitant]
     Active Substance: GLIMEPIRIDE
     Dosage: DOSE UNKNOWN
     Route: 048
  8. PREDONINE [Concomitant]
     Active Substance: PREDNISOLONE
     Dosage: 20 MG, AS REQUIRED WHEN SYMPTOMS DEVELOPED
     Route: 048
     Dates: start: 20180817
  9. MONTELUKAST [Concomitant]
     Active Substance: MONTELUKAST SODIUM
     Route: 048
  10. OLANZAPINE. [Concomitant]
     Active Substance: OLANZAPINE
     Dosage: DOSE UNKNOWN
     Route: 048
  11. HYDROCORTONE [Concomitant]
     Active Substance: HYDROCORTISONE
     Dosage: 300 MG, NUMBER OF SEPARATE DOSAGES UNKNOWN
     Route: 041
     Dates: start: 20180817
  12. MUCODYNE [Concomitant]
     Active Substance: CARBOCYSTEINE
     Route: 048
  13. DAIPHEN [Concomitant]
     Active Substance: SULFAMETHOXAZOLE\TRIMETHOPRIM
     Dosage: DOSE UNKNOWN
     Route: 048
  14. RELVAR [Concomitant]
     Active Substance: FLUTICASONE FUROATE\VILANTEROL TRIFENATATE
     Route: 055
  15. SULTANOL [Concomitant]
     Active Substance: ALBUTEROL SULFATE
     Dosage: AS REQUIRED WHEN SYMPTOMS DEVELOPED (AT OUTSIDE)
     Route: 055
  16. LANSOPRAZOLE. [Concomitant]
     Active Substance: LANSOPRAZOLE
     Route: 048
  17. ALENDRONATE [Concomitant]
     Active Substance: ALENDRONATE SODIUM
     Route: 048
  18. FASENRA [Suspect]
     Active Substance: BENRALIZUMAB
     Indication: ASTHMA
     Route: 058
     Dates: start: 20180731
  19. SPIRIVA [Concomitant]
     Active Substance: TIOTROPIUM BROMIDE MONOHYDRATE
     Route: 055

REACTIONS (4)
  - Nasopharyngitis [Unknown]
  - Asthma [Fatal]
  - Fall [Unknown]
  - Respiratory arrest [Unknown]

NARRATIVE: CASE EVENT DATE: 20180816
